FAERS Safety Report 17550221 (Version 2)
Quarter: 2020Q3

REPORT INFORMATION
  Report Type: Spontaneous
  Country: US (occurrence: US)
  Receive Date: 20200317
  Receipt Date: 20200827
  Transmission Date: 20201102
  Serious: No
  Sender: FDA-Public Use
  Company Number: US-PFIZER INC-2019434139

PATIENT
  Age: 59 Year
  Sex: Male
  Weight: 110.6 kg

DRUGS (2)
  1. DILANTIN [Suspect]
     Active Substance: PHENYTOIN
     Indication: IDIOPATHIC PARTIAL EPILEPSY
     Dosage: 500 MG, DAILY (TWO CAPSULES IN THE MORNING AT 7 AM, THREE CAPSULES IN THE EVENING AT 7 PM)
     Route: 048
  2. KEPPRA [Concomitant]
     Active Substance: LEVETIRACETAM
     Dosage: 1500 MG, 2X/DAY

REACTIONS (2)
  - Off label use [Unknown]
  - Drug ineffective for unapproved indication [Unknown]
